FAERS Safety Report 7178358-2 (Version None)
Quarter: 2010Q4

REPORT INFORMATION
  Report Type: 
  Country: None (occurrence: None)
  Receive Date: 20101220
  Receipt Date: 20101208
  Transmission Date: 20110411
  Serious: Yes (Hospitalization, Other)
  Sender: FDA-Public Use
  Company Number: US-PFIZER INC-US-WYE-H17747410

PATIENT
  Sex: Female

DRUGS (7)
  1. PRISTIQ [Suspect]
     Indication: DEPRESSION
     Dosage: 50.0 MG, 1X/DAY
     Route: 048
     Dates: end: 20100101
  2. PRISTIQ [Suspect]
     Dosage: 50.0 MG, 1X/DAY
     Route: 048
     Dates: start: 20100101
  3. ZOLOFT [Suspect]
     Indication: DEPRESSION
     Dosage: 50.0 MG, 1X/DAY
     Route: 048
     Dates: start: 20100101, end: 20100101
  4. LASIX [Concomitant]
     Route: 065
  5. LISINOPRIL [Concomitant]
     Route: 065
  6. LOSARTAN [Concomitant]
     Route: 065
  7. LORTAB [Concomitant]
     Route: 065

REACTIONS (7)
  - DIARRHOEA [None]
  - DRUG INEFFECTIVE [None]
  - DRUG WITHDRAWAL SYNDROME [None]
  - FOREIGN BODY [None]
  - HOSPITALISATION [None]
  - LUNG NEOPLASM MALIGNANT [None]
  - PANIC REACTION [None]
